FAERS Safety Report 25757586 (Version 1)
Quarter: 2025Q3

REPORT INFORMATION
  Report Type: Spontaneous
  Country: EC (occurrence: EC)
  Receive Date: 20250903
  Receipt Date: 20250903
  Transmission Date: 20251020
  Serious: Yes (Hospitalization, Other)
  Sender: AMERICAN REGENT
  Company Number: EC-AMERICAN REGENT INC-2025003310

PATIENT
  Sex: Female

DRUGS (1)
  1. FERINJECT [Suspect]
     Active Substance: FERRIC CARBOXYMALTOSE
     Indication: Product used for unknown indication
     Route: 064

REACTIONS (3)
  - Hyperbilirubinaemia neonatal [Recovered/Resolved]
  - Neonatal tachypnoea [Recovered/Resolved]
  - Foetal exposure during pregnancy [Unknown]
